FAERS Safety Report 14473066 (Version 1)
Quarter: 2018Q1

REPORT INFORMATION
  Report Type: Spontaneous
  Country: JP (occurrence: JP)
  Receive Date: 20180201
  Receipt Date: 20180201
  Transmission Date: 20180509
  Serious: Yes (Hospitalization, Other)
  Sender: FDA-Public Use
  Company Number: JP-ACCORD-063056

PATIENT
  Age: 76 Year
  Sex: Male

DRUGS (1)
  1. METHOTREXATE. [Suspect]
     Active Substance: METHOTREXATE
     Indication: RHEUMATOID ARTHRITIS

REACTIONS (4)
  - Diffuse large B-cell lymphoma [Recovering/Resolving]
  - Histiocytosis haematophagic [Recovering/Resolving]
  - Lymphoproliferative disorder [Recovering/Resolving]
  - Infarction [Recovering/Resolving]
